FAERS Safety Report 25659619 (Version 4)
Quarter: 2025Q4

REPORT INFORMATION
  Report Type: Spontaneous
  Country: EU (occurrence: EU)
  Receive Date: 20250808
  Receipt Date: 20251001
  Transmission Date: 20260118
  Serious: Yes (Other)
  Sender: MERCK SHARP & DOHME LLC
  Company Number: EU-Eisai-EC-2025-193115

PATIENT
  Age: 75 Year
  Sex: Female
  Weight: 86 kg

DRUGS (5)
  1. PEMBROLIZUMAB [Suspect]
     Active Substance: PEMBROLIZUMAB
     Indication: Endometrial adenocarcinoma
     Dosage: 200 MG, Q3W
     Route: 042
     Dates: start: 20221122, end: 20230124
  2. PEMBROLIZUMAB [Suspect]
     Active Substance: PEMBROLIZUMAB
     Indication: Endometrial adenocarcinoma
     Dosage: 200 MG, Q3W
     Route: 042
     Dates: start: 20230307, end: 20240917
  3. LENVATINIB [Suspect]
     Active Substance: LENVATINIB
     Indication: Endometrial adenocarcinoma
     Dosage: 14 MG, QD
     Route: 048
     Dates: end: 202410
  4. LENVATINIB [Suspect]
     Active Substance: LENVATINIB
     Indication: Endometrial adenocarcinoma
     Dosage: 20 MG, QD
     Route: 048
     Dates: start: 202211
  5. Tareg 80 [Concomitant]
     Indication: Hypertension
     Dosage: 80 MG DAILY
     Route: 048

REACTIONS (3)
  - Tumour pseudoprogression [Unknown]
  - Immune-mediated hypothyroidism [Unknown]
  - Hypertension [Unknown]

NARRATIVE: CASE EVENT DATE: 20221101
